FAERS Safety Report 7457290-0 (Version None)
Quarter: 2011Q2

REPORT INFORMATION
  Report Type: 
  Country: None (occurrence: None)
  Receive Date: 20110504
  Receipt Date: 20110426
  Transmission Date: 20111010
  Serious: Yes (Other)
  Sender: FDA-Public Use
  Company Number: US-JNJFOC-20110401493

PATIENT
  Sex: Female
  Weight: 68.04 kg

DRUGS (2)
  1. AMBIEN [Concomitant]
     Indication: SLEEP DISORDER
     Dosage: 5-10MG/TABLET/5MG/ONE OR TWO  TABLETS
     Route: 048
  2. LEVAQUIN [Suspect]
     Indication: KIDNEY INFECTION
     Route: 048

REACTIONS (2)
  - BEDRIDDEN [None]
  - FIBROMYALGIA [None]
